FAERS Safety Report 7403535-2 (Version None)
Quarter: 2011Q1

REPORT INFORMATION
  Report Type: 
  Country: None (occurrence: None)
  Receive Date: 20110330
  Receipt Date: 20110315
  Transmission Date: 20110831
  Serious: Yes (Hospitalization)
  Sender: FDA-Public Use
  Company Number: 2011MA002444

PATIENT
  Age: 55 Year
  Sex: Female

DRUGS (4)
  1. ACYCLOVIR [Suspect]
     Indication: HERPES SIMPLEX
     Dosage: 30 MG/KG; QD
  2. GANCICLOVIR [Concomitant]
  3. PREDNISONE [Concomitant]
  4. FOSCARNET [Concomitant]

REACTIONS (3)
  - HYPONATRAEMIA [None]
  - NEUTROPENIA [None]
  - RENAL FAILURE [None]
